FAERS Safety Report 4837420-7 (Version None)
Quarter: 2005Q4

REPORT INFORMATION
  Report Type: 
  Country: None (occurrence: None)
  Receive Date: 20051128
  Receipt Date: 20051117
  Transmission Date: 20060501
  Serious: Yes (Other)
  Sender: FDA-Public Use
  Company Number: DE-JNJFOC-20051104646

PATIENT
  Age: 79 Year
  Sex: Female

DRUGS (8)
  1. HALDOL [Suspect]
     Indication: DRUG USE FOR UNKNOWN INDICATION
  2. AKINETON [Suspect]
     Indication: DRUG USE FOR UNKNOWN INDICATION
  3. TIAPRIDEX [Suspect]
     Indication: DRUG USE FOR UNKNOWN INDICATION
  4. NEUROCIL [Suspect]
  5. ZOLOFT [Concomitant]
  6. OMEPRAZOLE [Concomitant]
  7. TORSEMIDE [Concomitant]
  8. METOPROLOL [Concomitant]

REACTIONS (1)
  - DELIRIUM [None]
